FAERS Safety Report 6454564-7 (Version None)
Quarter: 2009Q4

REPORT INFORMATION
  Report Type: 
  Country: None (occurrence: None)
  Receive Date: 20091118
  Receipt Date: 20091104
  Transmission Date: 20100525
  Serious: Yes (Other)
  Sender: FDA-Public Use
  Company Number: MPS1-1000278

PATIENT
  Age: 17 Year
  Sex: Male
  Weight: 79 kg

DRUGS (1)
  1. ALDURAZYME [Suspect]
     Indication: MUCOPOLYSACCHARIDOSIS I
     Dosage: 46 MG, 1X/W, INTRAVENOUS
     Route: 042
     Dates: start: 20010711

REACTIONS (4)
  - COUGH [None]
  - H1N1 INFLUENZA [None]
  - INFLUENZA LIKE ILLNESS [None]
  - PYREXIA [None]
